FAERS Safety Report 4529517-6 (Version None)
Quarter: 2004Q4

REPORT INFORMATION
  Report Type: 
  Country: None (occurrence: None)
  Receive Date: 20041214
  Receipt Date: 20041129
  Transmission Date: 20050328
  Serious: Yes (Hospitalization)
  Sender: FDA-Public Use
  Company Number: US-JNJFOC-20040900337

PATIENT
  Age: 76 Year
  Sex: Female

DRUGS (10)
  1. EXTRA STRENGTH TYLENOL (ACETAMINOPHEN) LIQUID [Suspect]
     Indication: RHEUMATOID ARTHRITIS
     Dosage: 500 MG,  3 IN 1 DAY
     Dates: start: 20040501, end: 20040601
  2. LIPITPR (ATORVASTATIN) [Concomitant]
  3. ASPIRIN [Concomitant]
  4. SYNTHROID [Concomitant]
  5. NEXIUM [Concomitant]
  6. LIBRAX [Concomitant]
  7. INDERAL [Concomitant]
  8. NEURONTIN [Concomitant]
  9. PROTONIX [Concomitant]
  10. LEVOTHYROID (LEVOTHYROID) [Concomitant]

REACTIONS (2)
  - DYSPEPSIA [None]
  - VIRAL INFECTION [None]
